FAERS Safety Report 6608802-8 (Version None)
Quarter: 2010Q1

REPORT INFORMATION
  Report Type: 
  Country: None (occurrence: None)
  Receive Date: 20100301
  Receipt Date: 20100217
  Transmission Date: 20100710
  Serious: Yes (Hospitalization)
  Sender: FDA-Public Use
  Company Number: JP-BAYER-201010862BYL

PATIENT
  Age: 69 Year
  Sex: Female
  Weight: 44 kg

DRUGS (13)
  1. ASPIRIN [Suspect]
     Indication: DRUG USE FOR UNKNOWN INDICATION
  2. FOSRENOL [Suspect]
     Indication: HYPERPHOSPHATAEMIA
     Route: 048
     Dates: start: 20090601
  3. PRECIPITATED CALCIUM CARBONATE [Concomitant]
     Indication: HYPERPHOSPHATAEMIA
     Dosage: SINCE MORE THAN 4 WEEKS BEFORE
     Route: 048
     Dates: start: 20090807, end: 20091130
  4. OXAROL [Concomitant]
     Dosage: TOTAL DAILY DOSE: 5 ?G
     Route: 042
  5. DIART [Concomitant]
     Dosage: SINCE BEFORE OVER 4 WEEKS
     Route: 048
  6. OMEPRAL [Concomitant]
     Dosage: SINCE MORE THAN 4 WEEKS BEFORE
     Route: 048
  7. CONIEL [Concomitant]
     Dosage: SINCE MORE THAN 4 WEEKS BEFORE
     Route: 048
  8. AMOBAN [Concomitant]
     Dosage: SINCE MORE THAN 4 WEEKS BEFORE
     Route: 048
  9. ZESULAN [Concomitant]
     Dosage: SINCE MORE THAN 4 WEEKS BEFORE
     Route: 048
  10. DIOVAN [Concomitant]
     Dosage: SINCE MORE THAN 4 WEEKS BEFORE
     Route: 048
  11. ADALAT CC [Concomitant]
     Dosage: SINCE MORE THAN 4 WEEKS BEFORE
     Route: 048
  12. SELOKEN [Concomitant]
     Dosage: SINCE MORE THAN 4 WEEKS BEFORE
     Route: 048
  13. EPOGIN INJ. 1500,3000 [Concomitant]
     Dosage: TOTAL DAILY DOSE: 3000 IU
     Route: 042

REACTIONS (3)
  - ANAEMIA [None]
  - HEPATIC FUNCTION ABNORMAL [None]
  - SHUNT MALFUNCTION [None]
